FAERS Safety Report 19435770 (Version 1)
Quarter: 2021Q2

REPORT INFORMATION
  Report Type: Spontaneous
  Country: JP (occurrence: JP)
  Receive Date: 20210618
  Receipt Date: 20210618
  Transmission Date: 20210717
  Serious: Yes (Hospitalization, Other)
  Sender: FDA-Public Use
  Company Number: JP-ACCORD-228008

PATIENT
  Age: 84 Year
  Sex: Female

DRUGS (2)
  1. DONEPEZIL. [Suspect]
     Active Substance: DONEPEZIL
     Indication: DEMENTIA WITH LEWY BODIES
  2. PEROSPIRONE [Concomitant]
     Active Substance: PEROSPIRONE
     Indication: PSYCHOTIC DISORDER

REACTIONS (1)
  - Sinus node dysfunction [Recovering/Resolving]
